FAERS Safety Report 18600838 (Version 3)
Quarter: 2021Q1

REPORT INFORMATION
  Report Type: Spontaneous
  Country: US (occurrence: US)
  Receive Date: 20201210
  Receipt Date: 20210322
  Transmission Date: 20210419
  Serious: Yes (Other)
  Sender: FDA-Public Use
  Company Number: US-PFIZER INC-2020485370

PATIENT
  Age: 94 Year
  Sex: Female

DRUGS (1)
  1. VYNDAMAX [Suspect]
     Active Substance: TAFAMIDIS
     Indication: AMYLOIDOSIS SENILE
     Dosage: 61 MG

REACTIONS (8)
  - Asthenia [Unknown]
  - Fatigue [Unknown]
  - Compression fracture [Unknown]
  - Back pain [Unknown]
  - Speech disorder [Unknown]
  - Mental impairment [Unknown]
  - Hypoacusis [Unknown]
  - Off label use [Unknown]
